FAERS Safety Report 6231473-X (Version None)
Quarter: 2009Q2

REPORT INFORMATION
  Report Type: 
  Country: None (occurrence: None)
  Receive Date: 20090616
  Receipt Date: 20090608
  Transmission Date: 20091009
  Serious: Yes (Hospitalization)
  Sender: FDA-Public Use
  Company Number: A0758360A

PATIENT
  Age: 66 Year
  Sex: Male
  Weight: 85.5 kg

DRUGS (13)
  1. AVANDIA [Suspect]
     Dosage: 8MG PER DAY
     Route: 048
     Dates: start: 20011101, end: 20061101
  2. ALLEGRA [Concomitant]
  3. PRILOSEC [Concomitant]
  4. ESTER C [Concomitant]
  5. MULTI-VITAMIN [Concomitant]
  6. CO Q10 [Concomitant]
  7. SAW PALMETTO [Concomitant]
  8. GLUCOPHAGE [Concomitant]
  9. METFORMIN HCL [Concomitant]
  10. LIPITOR [Concomitant]
  11. BUMETANIDE [Concomitant]
  12. AMARYL [Concomitant]
  13. UNSPECIFIED MEDICATION [Concomitant]

REACTIONS (2)
  - CARDIAC FAILURE CONGESTIVE [None]
  - CONGESTIVE CARDIOMYOPATHY [None]
